FAERS Safety Report 6525693-4 (Version None)
Quarter: 2010Q1

REPORT INFORMATION
  Report Type: 
  Country: None (occurrence: None)
  Receive Date: 20100104
  Receipt Date: 20091221
  Transmission Date: 20100710
  Serious: Yes (Death, Life-Threatening, Hospitalization)
  Sender: FDA-Public Use
  Company Number: US-MYLANLABS-2009S1021902

PATIENT
  Age: 66 Year
  Sex: Female

DRUGS (21)
  1. APIXABAN [Suspect]
     Indication: THROMBOSIS PROPHYLAXIS
     Route: 048
     Dates: start: 20090731
  2. WARFARIN SODIUM [Suspect]
     Indication: THROMBOSIS PROPHYLAXIS
     Route: 048
     Dates: start: 20090731
  3. PLACEBO [Suspect]
     Indication: THROMBOSIS PROPHYLAXIS
     Route: 048
     Dates: start: 20090731
  4. DIGOXIN [Suspect]
  5. INDOMETHACIN [Suspect]
     Indication: GOUT
     Dates: start: 20091001
  6. AMIODARONE HCL [Concomitant]
  7. SPIRONOLACTONE [Concomitant]
  8. METOPROLOL TARTRATE [Concomitant]
  9. ASPIRIN [Concomitant]
  10. ZOCOR [Concomitant]
  11. SYNTHROID [Concomitant]
  12. MAXERAN [Concomitant]
  13. INSULIN [Concomitant]
  14. LASIX [Concomitant]
  15. PANTOPRAZOLE [Concomitant]
  16. VITAMIN D [Concomitant]
  17. CALCIUM CARBONATE [Concomitant]
  18. TEMAZEPAM [Concomitant]
  19. QUETIAPINE [Concomitant]
  20. SLOW-K [Concomitant]
  21. SERTRALINE HCL [Concomitant]

REACTIONS (3)
  - DEATH [None]
  - RENAL FAILURE ACUTE [None]
  - THERAPEUTIC AGENT TOXICITY [None]
